FAERS Safety Report 8178004-5 (Version None)
Quarter: 2012Q1

REPORT INFORMATION
  Report Type: 
  Country: None (occurrence: None)
  Receive Date: 20120301
  Receipt Date: 20120223
  Transmission Date: 20120608
  Serious: Yes (Death)
  Sender: FDA-Public Use
  Company Number: US-CELGENEUS-163-21880-12022665

PATIENT
  Sex: Female

DRUGS (8)
  1. LEVOTHROID [Concomitant]
     Dosage: 175 MICROGRAM
     Route: 048
  2. LORTAB [Concomitant]
     Dosage: 10-500MG
     Route: 048
  3. ZOFRAN [Concomitant]
     Dosage: 8 MILLIGRAM
     Route: 048
  4. ZOMETA [Concomitant]
     Dosage: 4MG/5ML
     Route: 050
  5. DOCUSATE [Concomitant]
     Dosage: 100 MILLIGRAM
     Route: 048
  6. AMBIEN [Concomitant]
     Dosage: 10 MILLIGRAM
     Route: 048
  7. REVLIMID [Suspect]
     Indication: MULTIPLE MYELOMA
     Route: 048
     Dates: start: 20101209
  8. HYDROCHLOROT [Concomitant]
     Dosage: 12.5 MILLIGRAM
     Route: 048

REACTIONS (1)
  - DEATH [None]
